FAERS Safety Report 23660039 (Version 1)
Quarter: 2024Q1

REPORT INFORMATION
  Report Type: Spontaneous
  Country: US (occurrence: US)
  Receive Date: 20240321
  Receipt Date: 20240321
  Transmission Date: 20240409
  Serious: No
  Sender: FDA-Public Use
  Company Number: US-BAUSCHBL-2024BNL003369

PATIENT
  Sex: Female

DRUGS (1)
  1. XIIDRA [Suspect]
     Active Substance: LIFITEGRAST
     Indication: Product used for unknown indication
     Dosage: ABOUT 2-3 WEEKS AGO, 1 DROP INTO EACH EYE TWICE DAILY
     Route: 047
     Dates: start: 2024

REACTIONS (5)
  - Eye irritation [Unknown]
  - Vision blurred [Unknown]
  - Product delivery mechanism issue [Unknown]
  - Product use complaint [Unknown]
  - Wrong technique in product usage process [Unknown]
